FAERS Safety Report 12450568 (Version 1)
Quarter: 2016Q2

REPORT INFORMATION
  Report Type: Other
  Country: IT (occurrence: IT)
  Receive Date: 20160609
  Receipt Date: 20160609
  Transmission Date: 20160815
  Serious: Yes (Other)
  Sender: FDA-Public Use
  Company Number: IT-LUPIN PHARMACEUTICALS INC.-2016-02427

PATIENT
  Age: 28 Year
  Sex: Male

DRUGS (8)
  1. PROMAZINE [Concomitant]
     Active Substance: PROMAZINE
     Indication: PSYCHOTIC DISORDER
     Dosage: 25 MG/ML
     Route: 065
     Dates: start: 201210
  2. LORAZEPAM. [Concomitant]
     Active Substance: LORAZEPAM
     Indication: PSYCHOTIC DISORDER
     Route: 065
     Dates: start: 201210
  3. DIVALPROEX SODIUM. [Concomitant]
     Active Substance: DIVALPROEX SODIUM
     Indication: PSYCHOTIC DISORDER
     Route: 065
     Dates: start: 201210
  4. ZIPRASIDONE. [Suspect]
     Active Substance: ZIPRASIDONE
     Indication: PSYCHOTIC DISORDER
     Route: 065
     Dates: start: 201210
  5. CLONAZEPAM. [Concomitant]
     Active Substance: CLONAZEPAM
     Indication: PSYCHOTIC DISORDER
     Route: 065
     Dates: start: 201210
  6. BIPERIDEN [Concomitant]
     Active Substance: BIPERIDEN
     Indication: PSYCHOTIC DISORDER
     Route: 065
     Dates: start: 201210
  7. HALOPERIDOL. [Concomitant]
     Active Substance: HALOPERIDOL
     Indication: PSYCHOTIC DISORDER
     Route: 065
     Dates: start: 201210
  8. DELORAZEPAM [Concomitant]
     Active Substance: DELORAZEPAM
     Indication: PSYCHOTIC DISORDER
     Dosage: 5 MG/ML
     Route: 065

REACTIONS (1)
  - Psychotic disorder [Recovering/Resolving]

NARRATIVE: CASE EVENT DATE: 201210
